FAERS Safety Report 10581857 (Version 1)
Quarter: 2014Q4

REPORT INFORMATION
  Report Type: Report from Study
  Country: GB (occurrence: GB)
  Receive Date: 20141113
  Receipt Date: 20141113
  Transmission Date: 20150529
  Serious: Yes (Hospitalization)
  Sender: FDA-Public Use
  Company Number: GB-ABBVIE-14K-167-1304874-00

PATIENT
  Age: 47 Year
  Sex: Male
  Weight: 88.5 kg

DRUGS (1)
  1. HUMIRA [Suspect]
     Active Substance: ADALIMUMAB
     Indication: PSORIASIS
     Route: 058
     Dates: start: 20131219

REACTIONS (2)
  - Vomiting [Recovered/Resolved]
  - Volvulus [Unknown]

NARRATIVE: CASE EVENT DATE: 20140520
